FAERS Safety Report 6755714-5 (Version None)
Quarter: 2010Q2

REPORT INFORMATION
  Report Type: 
  Country: None (occurrence: None)
  Receive Date: 20100604
  Receipt Date: 20100524
  Transmission Date: 20101027
  Serious: Yes (Hospitalization, Other)
  Sender: FDA-Public Use
  Company Number: US-PFIZER INC-2010065208

PATIENT
  Age: 81 Year
  Sex: Male
  Weight: 77.098 kg

DRUGS (10)
  1. ALDACTONE [Suspect]
     Indication: CARDIAC DISORDER
     Dosage: UNK
     Dates: start: 20100501, end: 20100501
  2. ALDACTONE [Suspect]
     Indication: DIURETIC THERAPY
  3. PLAVIX [Concomitant]
     Indication: CARDIAC DISORDER
     Dosage: 75 MG, UNK
  4. ACCUPRIL [Concomitant]
     Indication: CARDIAC DISORDER
     Dosage: 20 MG, UNK
  5. COREG [Concomitant]
     Indication: CARDIAC DISORDER
     Dosage: 40 MG, UNK
  6. ZOLOFT [Concomitant]
     Dosage: 100 MG, UNK
  7. BUSPAR [Concomitant]
     Dosage: 15 MG, 3X/DAY
  8. CALCIUM [Concomitant]
     Dosage: UNK
  9. VITAMINS [Concomitant]
     Dosage: UNK
  10. ROZEREM [Concomitant]
     Dosage: 5 MG, UNK

REACTIONS (5)
  - BLOOD PRESSURE DECREASED [None]
  - CARDIAC DISORDER [None]
  - DIZZINESS [None]
  - MALAISE [None]
  - NAUSEA [None]
